FAERS Safety Report 9218777 (Version 1)
Quarter: 2013Q1

REPORT INFORMATION
  Report Type: Spontaneous
  Country: US (occurrence: None)
  Receive Date: 20120827
  Receipt Date: 20120827
  Transmission Date: 20140127
  Serious: No
  Sender: FDA-Public Use
  Company Number: 354385

PATIENT
  Age: 75 Year
  Sex: Male

DRUGS (4)
  1. NOVOLOG MIX 70/30 FLEXPEN (INSULIN ASPART) SUSPENSION FOR INJECTION, 100U/ML [Suspect]
     Indication: TYPE 2 DIABETES MELLITUS
     Dosage: 50 U (MORNING TIME)
     Route: 058
  2. LEVEMIR FLEX PEN [Suspect]
     Indication: TYPE 2 DIABETES MELLITUS
     Route: 058
  3. VICTOZA (LIRAGLUTIDE) SOLUTION FOR INJECTION, 6MG/ML [Suspect]
     Route: 058
  4. JANUMET (METFORMIN HYDROCHLIRDE, SITGLIPTIN PHOSPHATE MONOHYDRATE) [Concomitant]

REACTIONS (2)
  - Decreased appetite [None]
  - Blood glucose increased [None]
